FAERS Safety Report 8548545-7 (Version None)
Quarter: 2012Q3

REPORT INFORMATION
  Report Type: 
  Country: None (occurrence: None)
  Receive Date: 20120717
  Receipt Date: 20120702
  Transmission Date: 20120928
  Serious: Yes (Life-Threatening)
  Sender: FDA-Public Use
  Company Number: FK201201849

PATIENT
  Age: 58 Year
  Sex: Female
  Weight: 95.2554 kg

DRUGS (5)
  1. PACLITAXEL [Suspect]
     Indication: CHEMOTHERAPY
     Dosage: 330 MG, INTRAVENOUS
     Route: 042
     Dates: start: 20120630, end: 20120630
  2. DEXAMETHASONE SODIUM PHOSPHATE [Concomitant]
  3. RANITIDINE HYDROCHLORIDE [Concomitant]
  4. PACLITAXEL [Suspect]
  5. DIPHENHYDRAMINE HCL [Concomitant]

REACTIONS (2)
  - GRAND MAL CONVULSION [None]
  - EYE MOVEMENT DISORDER [None]
